FAERS Safety Report 24703322 (Version 1)
Quarter: 2024Q4

REPORT INFORMATION
  Report Type: Spontaneous
  Country: CN (occurrence: CN)
  Receive Date: 20241205
  Receipt Date: 20241205
  Transmission Date: 20250114
  Serious: Yes (Hospitalization)
  Sender: BEIGENE
  Company Number: CN-BEIGENE-BGN-2024-019335

PATIENT

DRUGS (1)
  1. TISLELIZUMAB [Suspect]
     Active Substance: TISLELIZUMAB
     Indication: Rectosigmoid cancer metastatic
     Dosage: 200 MILLIGRAM
     Route: 041
     Dates: start: 20240725

REACTIONS (7)
  - Rash [Recovering/Resolving]
  - Pain of skin [Recovering/Resolving]
  - Skin weeping [Recovering/Resolving]
  - Pruritus [Unknown]
  - Erythema [Unknown]
  - Flushing [Unknown]
  - Skin erosion [Unknown]

NARRATIVE: CASE EVENT DATE: 20240910
